FAERS Safety Report 4912054-4 (Version None)
Quarter: 2006Q1

REPORT INFORMATION
  Report Type: 
  Country: None (occurrence: None)
  Receive Date: 20060209
  Receipt Date: 20060126
  Transmission Date: 20060701
  Serious: Yes (Death, Life-Threatening, Hospitalization, Other)
  Sender: FDA-Public Use
  Company Number: 2006-DE-00437GD

PATIENT
  Age: 64 Year
  Sex: Male

DRUGS (7)
  1. HYDROCORTISONE [Suspect]
     Indication: NON-HODGKIN'S LYMPHOMA
     Dosage: 25 MG, IT
  2. METHOTREXATE [Suspect]
     Indication: NON-HODGKIN'S LYMPHOMA
     Dosage: 15 MG (, ON DAY 1 OF CHEMOTHERAPY CYCLE), IT
  3. CYCLOPHOSPHAMIDE [Suspect]
     Indication: NON-HODGKIN'S LYMPHOMA
     Dosage: 1200 MG/M2 (, ON DAY 2 OF CHEMOTHERAPY CYCLE), IV
     Route: 042
  4. RITUXIMAB (RITUXIMAB) [Suspect]
     Indication: NON-HODGKIN'S LYMPHOMA
     Dosage: 375 MG/M2 (, ON DAY 1 OF CHEMOTHERAPY CYCLE), IV
     Route: 042
  5. DOXORUBICINE (DOXORUBICIN HYDROCHLORIDE) [Suspect]
     Indication: NON-HODGKIN'S LYMPHOMA
     Dosage: 75 MG/M2 (, ON DAY 1 OF CHEMOTHERAPY CYCLE), IV
     Route: 042
  6. VINDESINE (VINDESINE) [Suspect]
     Indication: NON-HODGKIN'S LYMPHOMA
     Dosage: 2 MG/M2 (, ON DAY 1 AND 5 OF CHEMOTHERAPY CYCLE), IV
     Route: 042
  7. BLEOMYCIN [Suspect]
     Indication: NON-HODGKIN'S LYMPHOMA
     Dosage: 10 MG (, ON DAY 1 AND 5 OF CHEMOTHERAPY CYCLE), IV
     Route: 042

REACTIONS (12)
  - BRAIN HERNIATION [None]
  - COMA [None]
  - DYSPHAGIA [None]
  - GENERAL PHYSICAL HEALTH DETERIORATION [None]
  - HEMIPARESIS [None]
  - INTRACRANIAL HYPOTENSION [None]
  - LUNG INFECTION [None]
  - MUSCLE SPASTICITY [None]
  - MYDRIASIS [None]
  - NEUROLOGICAL SYMPTOM [None]
  - PARAPARESIS [None]
  - PSYCHOMOTOR SKILLS IMPAIRED [None]
